FAERS Safety Report 15768006 (Version 1)
Quarter: 2018Q4

REPORT INFORMATION
  Report Type: Spontaneous
  Country: GB (occurrence: GB)
  Receive Date: 20181227
  Receipt Date: 20181227
  Transmission Date: 20190205
  Serious: Yes (Other)
  Sender: FDA-Public Use
  Company Number: GB-MYLANLABS-2018M1096305

PATIENT
  Age: 71 Year
  Sex: Male
  Weight: 108.5 kg

DRUGS (20)
  1. EPILIM [Concomitant]
     Active Substance: VALPROATE SODIUM
     Dosage: AT NIGHT
     Dates: start: 20180323
  2. LANSOPRAZOLE. [Concomitant]
     Active Substance: LANSOPRAZOLE
     Dosage: 1 CAPSULE DAILY WHEN REQUIRED
     Dates: start: 20180322
  3. ORAMORPH [Concomitant]
     Active Substance: MORPHINE SULFATE
     Dosage: FOUR HOURLY IF REQUIRED ONLY AND MAXIMUM UP TO FOUR TIMES A DAY 10MG/5ML
     Dates: start: 20180322
  4. RAMIPRIL. [Concomitant]
     Active Substance: RAMIPRIL
     Dosage: AT NIGHT
     Dates: start: 20180322
  5. COCODAMOL [Concomitant]
     Active Substance: ACETAMINOPHEN\CODEINE PHOSPHATE
     Dosage: TAKE TWO CAPSULES UP TO FOUR TIMES DAILY ONLY IF REQUIRED 30MG/500MG CAPSULES
     Dates: start: 20180322
  6. WARFARIN [Concomitant]
     Active Substance: WARFARIN
     Dosage: REFER TO YELLOW BOOK FOR DOSAGE INSTRUCTIONS
     Dates: start: 20180323
  7. METFORMIN [Concomitant]
     Active Substance: METFORMIN HYDROCHLORIDE
     Dosage: 500 MILLIGRAM, QD
     Dates: start: 20180323
  8. DULOXETINE. [Concomitant]
     Active Substance: DULOXETINE
     Dosage: 40 MILLIGRAM, QD
     Dates: start: 20180323
  9. ROSUVASTATIN. [Concomitant]
     Active Substance: ROSUVASTATIN
     Dosage: AT NIGHT
     Dates: start: 20180322
  10. FUROSEMIDE. [Concomitant]
     Active Substance: FUROSEMIDE
     Dosage: IN THE MORNING AND AT MIDDAY
     Dates: start: 20180323
  11. CLOTRIMAZOLE. [Concomitant]
     Active Substance: CLOTRIMAZOLE
     Dosage: APPLY TWO TO THREE TIMES DAILY
     Route: 061
     Dates: start: 20180425
  12. EPILIM [Concomitant]
     Active Substance: VALPROATE SODIUM
     Dosage: AT NIGHT
     Dates: start: 20180323
  13. WARFARIN [Concomitant]
     Active Substance: WARFARIN
     Dosage: REFER TO YELLOW BOOK FOR DOSAGE INSTRUCTIONS
     Dates: start: 20180323
  14. TEMAZEPAM. [Suspect]
     Active Substance: TEMAZEPAM
     Indication: PRODUCT USED FOR UNKNOWN INDICATION
     Dosage: 20 MILLIGRAM
     Route: 048
  15. METFORMIN [Concomitant]
     Active Substance: METFORMIN HYDROCHLORIDE
     Dates: start: 20180411, end: 20180522
  16. FLUCONAZOLE. [Concomitant]
     Active Substance: FLUCONAZOLE
     Dosage: 1 IMMEDIATELY
     Dates: start: 20180425
  17. CLENIL MODULITE [Concomitant]
     Active Substance: BECLOMETHASONE DIPROPIONATE
     Route: 055
     Dates: start: 20180323
  18. MST CONTINUS [Concomitant]
     Active Substance: MORPHINE SULFATE
     Dates: start: 20180322
  19. WARFARIN [Concomitant]
     Active Substance: WARFARIN
     Dosage: REFER TO YELLOW BOOK FOR DOSAGE INSTRUCTIONS
     Dates: start: 20180323
  20. VENTOLIN [Concomitant]
     Active Substance: ALBUTEROL SULFATE
     Dosage: 1 TO 2 PUFFS UP TO FOUR TIMES DAILY AS REQUIRED
     Route: 055
     Dates: start: 20180322

REACTIONS (1)
  - Syncope [Recovering/Resolving]
